FAERS Safety Report 8417021 (Version 3)
Quarter: 2013Q4

REPORT INFORMATION
  Report Type: Spontaneous
  Country: JP (occurrence: JP)
  Receive Date: 20120220
  Receipt Date: 20131031
  Transmission Date: 20140711
  Serious: Yes (Other)
  Sender: FDA-Public Use
  Company Number: JP-009507513-1202USA02029

PATIENT
  Age: 64 Year
  Sex: Female

DRUGS (1)
  1. FOSAMAC TABLETS 35MG [Suspect]
     Dosage: DAILY DOSE UNKNOWN
     Route: 048
     Dates: start: 200910

REACTIONS (2)
  - Femur fracture [Unknown]
  - Low turnover osteopathy [Unknown]
